FAERS Safety Report 10588683 (Version 3)
Quarter: 2015Q1

REPORT INFORMATION
  Report Type: Spontaneous
  Country: US (occurrence: US)
  Receive Date: 20141117
  Receipt Date: 20150211
  Transmission Date: 20150720
  Serious: Yes (Other)
  Sender: FDA-Public Use
  Company Number: US-GLAXOSMITHKLINE-US2014GSK022330

PATIENT
  Age: 65 Year
  Sex: Female

DRUGS (9)
  1. GAMUNEX [Concomitant]
     Active Substance: HUMAN IMMUNOGLOBULIN G
  2. BACTROBAN [Suspect]
     Active Substance: MUPIROCIN\MUPIROCIN CALCIUM
     Indication: VAGINAL DISCHARGE
  3. MUPIROCIN. [Suspect]
     Active Substance: MUPIROCIN
     Indication: PSEUDOMONAS INFECTION
  4. LEVOFLOXACIN EYE DROPS [Suspect]
     Active Substance: LEVOFLOXACIN
     Indication: EYE DISORDER
     Dosage: UNK
     Route: 047
     Dates: start: 201309
  5. BACTROBAN [Suspect]
     Active Substance: MUPIROCIN\MUPIROCIN CALCIUM
     Indication: SCRATCH
     Dosage: UNK
     Route: 067
  6. BACTROBAN [Suspect]
     Active Substance: MUPIROCIN\MUPIROCIN CALCIUM
     Indication: PSEUDOMONAS INFECTION
  7. MUPIROCIN. [Suspect]
     Active Substance: MUPIROCIN
     Indication: SCRATCH
  8. MUPIROCIN. [Suspect]
     Active Substance: MUPIROCIN
     Indication: VAGINAL DISCHARGE
  9. CIMETIDINE [Concomitant]
     Active Substance: CIMETIDINE

REACTIONS (7)
  - Drug ineffective [Unknown]
  - Incorrect route of drug administration [Unknown]
  - Therapeutic response unexpected [Unknown]
  - Diplopia [Unknown]
  - Retinal detachment [Unknown]
  - Visual field defect [Unknown]
  - Visual brightness [Unknown]

NARRATIVE: CASE EVENT DATE: 2013
